FAERS Safety Report 9892374 (Version 1)
Quarter: 2014Q1

REPORT INFORMATION
  Report Type: Spontaneous
  Country: US (occurrence: US)
  Receive Date: 20140212
  Receipt Date: 20140212
  Transmission Date: 20141002
  Serious: No
  Sender: FDA-Public Use
  Company Number: US-ENDO PHARMACEUTICALS INC.-PERP20130003

PATIENT
  Age: 51 Year
  Sex: Female

DRUGS (4)
  1. PERPHENAZINE TABLETS 4MG [Suspect]
     Indication: NEGATIVE THOUGHTS
     Route: 048
  2. NORTRIPTYLINE [Concomitant]
     Indication: DEPRESSION
     Dosage: 25-50 MG
     Route: 048
  3. PATANOL [Concomitant]
     Indication: PRODUCT USED FOR UNKNOWN INDICATION
     Dosage: UNK
     Route: 047
  4. AZELASTINE [Concomitant]
     Indication: HYPERSENSITIVITY
     Dosage: 2 SPRAYS

REACTIONS (2)
  - Insomnia [Not Recovered/Not Resolved]
  - Drug effect decreased [Not Recovered/Not Resolved]
